FAERS Safety Report 6693786-7 (Version None)
Quarter: 2010Q2

REPORT INFORMATION
  Report Type: 
  Country: None (occurrence: None)
  Receive Date: 20100423
  Receipt Date: 20100413
  Transmission Date: 20101027
  Serious: Yes (Other)
  Sender: FDA-Public Use
  Company Number: US-PFIZER INC-2010047295

PATIENT
  Sex: Female
  Weight: 113 kg

DRUGS (12)
  1. LIPITOR [Suspect]
     Indication: BLOOD CHOLESTEROL INCREASED
     Dosage: 40 MG, DAILY
     Route: 048
     Dates: start: 20070101, end: 20100321
  2. LIPITOR [Suspect]
     Dosage: 20 MG, 1X/DAY
     Route: 048
  3. CADUET [Suspect]
     Indication: HYPERTENSION
     Dosage: UNK
     Dates: start: 20070101
  4. CADUET [Suspect]
     Indication: BLOOD CHOLESTEROL INCREASED
  5. NORVASC [Suspect]
     Indication: HYPERTENSION
  6. TEGRETOL [Concomitant]
     Indication: CONVULSION
     Dosage: 200 MG, 3X/DAY
     Dates: start: 20010101
  7. KEPPRA [Concomitant]
     Indication: CONVULSION
     Dosage: UNK
     Dates: start: 20010101
  8. LOPRESSOR [Concomitant]
     Indication: HYPERTENSION
     Dosage: 50 MG, DAILY
     Dates: start: 20010101
  9. ACETYLSALICYLIC ACID [Concomitant]
     Dosage: UNK, DAILY
  10. NEXIUM [Concomitant]
     Dosage: 40 MG, UNK
  11. LASIX [Concomitant]
     Dosage: 40 MG, UNK
  12. POTASSIUM [Concomitant]
     Dosage: 40 MG, DAILY

REACTIONS (10)
  - BONE DISORDER [None]
  - C-REACTIVE PROTEIN INCREASED [None]
  - DYSPNOEA [None]
  - INSOMNIA [None]
  - LOW DENSITY LIPOPROTEIN INCREASED [None]
  - MUSCLE SPASMS [None]
  - MUSCULAR WEAKNESS [None]
  - MYALGIA [None]
  - RED BLOOD CELL SEDIMENTATION RATE INCREASED [None]
  - THINKING ABNORMAL [None]
